FAERS Safety Report 6186861-7 (Version None)
Quarter: 2009Q2

REPORT INFORMATION
  Report Type: 
  Country: None (occurrence: None)
  Receive Date: 20090512
  Receipt Date: 20090506
  Transmission Date: 20091009
  Serious: Yes (Life-Threatening, Other)
  Sender: FDA-Public Use
  Company Number: US-CELGENEUS-163-20785-08090190

PATIENT
  Sex: Female

DRUGS (5)
  1. THALOMID [Suspect]
     Indication: MULTIPLE MYELOMA
     Route: 048
     Dates: start: 20050810, end: 20071205
  2. THALOMID [Suspect]
     Dosage: 50-100MG
     Route: 048
     Dates: start: 20040310, end: 20050801
  3. ERYTHROPOETIN [Concomitant]
     Indication: DRUG USE FOR UNKNOWN INDICATION
     Route: 065
  4. WARFARIN SODIUM [Concomitant]
     Indication: PULMONARY HYPERTENSION
     Route: 065
     Dates: start: 20080301
  5. DEXAMETHASONE 4MG TAB [Concomitant]
     Indication: DRUG USE FOR UNKNOWN INDICATION
     Route: 065
     Dates: start: 20070801, end: 20080301

REACTIONS (5)
  - ATRIAL FIBRILLATION [None]
  - NEUROPATHY PERIPHERAL [None]
  - OEDEMA PERIPHERAL [None]
  - PULMONARY ARTERIAL HYPERTENSION [None]
  - RIGHT VENTRICULAR FAILURE [None]
